FAERS Safety Report 6535628-6 (Version None)
Quarter: 2010Q1

REPORT INFORMATION
  Report Type: 
  Country: None (occurrence: None)
  Receive Date: 20100113
  Receipt Date: 20100106
  Transmission Date: 20100710
  Serious: Yes (Hospitalization)
  Sender: FDA-Public Use
  Company Number: PHHY2010US01209

PATIENT
  Sex: Female

DRUGS (10)
  1. EXJADE [Suspect]
     Indication: LYMPHADENOPATHY
     Dosage: 500 MG, TID
     Route: 048
     Dates: start: 20091102
  2. COUMADIN ^TARO^ [Interacting]
  3. XANAX [Concomitant]
  4. LISINOPRIL [Concomitant]
  5. LASIX [Concomitant]
  6. LEVOXYL [Concomitant]
  7. ALDACTONE [Concomitant]
  8. FOLIC ACID [Concomitant]
  9. VERAPAMIL [Concomitant]
  10. CELLCEPT [Concomitant]

REACTIONS (4)
  - BLOOD COUNT ABNORMAL [None]
  - DEEP VEIN THROMBOSIS [None]
  - DRUG INTERACTION [None]
  - INFLUENZA [None]
